FAERS Safety Report 6576517-0 (Version None)
Quarter: 2010Q1

REPORT INFORMATION
  Report Type: 
  Country: None (occurrence: None)
  Receive Date: 20100210
  Receipt Date: 20100129
  Transmission Date: 20100710
  Serious: Yes (Other)
  Sender: FDA-Public Use
  Company Number: FR-AMGEN-US389228

PATIENT
  Sex: Male

DRUGS (3)
  1. ENBREL [Suspect]
     Indication: ANKYLOSING SPONDYLITIS
     Route: 058
     Dates: start: 20100105, end: 20100119
  2. DOLIPRANE [Concomitant]
     Dosage: UNKNOWN
     Dates: start: 20100122
  3. CONTRAMAL [Concomitant]
     Dosage: UNKNOWN
     Dates: start: 20100122

REACTIONS (6)
  - ARTHRALGIA [None]
  - FEELING OF BODY TEMPERATURE CHANGE [None]
  - LOSS OF CONSCIOUSNESS [None]
  - MUSCULOSKELETAL STIFFNESS [None]
  - PYREXIA [None]
  - TONSILLITIS [None]
